FAERS Safety Report 11457272 (Version 1)
Quarter: 2015Q3

REPORT INFORMATION
  Report Type: Spontaneous
  Country: US (occurrence: None)
  Receive Date: 20150903
  Receipt Date: 20150903
  Transmission Date: 20151125
  Serious: Yes (Life-Threatening, Hospitalization, Disabling)
  Sender: FDA-Public Use
  Company Number: None

PATIENT
  Age: 68 Year
  Sex: Female
  Weight: 59.5 kg

DRUGS (1)
  1. TRANEXAMIC ACID 100 MG/ML [Suspect]
     Active Substance: TRANEXAMIC ACID
     Indication: PROCEDURAL HAEMORRHAGE
     Route: 061
     Dates: start: 20150811

REACTIONS (13)
  - Product packaging confusion [None]
  - Seizure [None]
  - Anaemia [None]
  - Hypertension [None]
  - Pneumonia [None]
  - Myoclonus [None]
  - Muscular weakness [None]
  - Sedation [None]
  - Ventricular tachycardia [None]
  - Incorrect route of drug administration [None]
  - Acute kidney injury [None]
  - Confusional state [None]
  - Dysarthria [None]

NARRATIVE: CASE EVENT DATE: 20150811
